FAERS Safety Report 4340648-6 (Version None)
Quarter: 2004Q2

REPORT INFORMATION
  Report Type: 
  Country: None (occurrence: None)
  Receive Date: 20040413
  Receipt Date: 20040401
  Transmission Date: 20050107
  Serious: Yes (Hospitalization)
  Sender: FDA-Public Use
  Company Number: US-JNJFOC-20040422430

PATIENT
  Age: 25 Year
  Sex: Male
  Weight: 58.0604 kg

DRUGS (6)
  1. INFLIXIMAB (INFLIXIMAB, RECOMBINANT) LYOPHILIZED POWDER [Suspect]
     Indication: CROHN'S DISEASE
     Dosage: 5 MG/KG, INTRAVENOUS
     Route: 042
     Dates: start: 20021024
  2. AZATHIOPRINE [Concomitant]
  3. MESALAMINE [Concomitant]
  4. ANTIBIOTICS [Concomitant]
  5. PREDNISONE [Concomitant]
  6. NARCOTIC ANALGESICS [Concomitant]

REACTIONS (4)
  - ABSCESS [None]
  - BUTTOCK PAIN [None]
  - FISTULA [None]
  - PYREXIA [None]
